FAERS Safety Report 10252786 (Version 1)
Quarter: 2014Q2

REPORT INFORMATION
  Report Type: Spontaneous
  Country: US (occurrence: US)
  Receive Date: 20140623
  Receipt Date: 20140623
  Transmission Date: 20141212
  Serious: No
  Sender: FDA-Public Use
  Company Number: US-PFIZER INC-2014168709

PATIENT
  Age: 62 Year
  Sex: Female
  Weight: 73.92 kg

DRUGS (10)
  1. XANAX [Suspect]
     Indication: PANIC ATTACK
     Dosage: 1 MG, 2X/DAY
  2. XANAX [Interacting]
     Indication: ANXIETY
  3. LYRICA [Interacting]
     Indication: FIBROMYALGIA
     Dosage: 50 MG, 2X/DAY
     Dates: start: 201406
  4. LYRICA [Interacting]
     Indication: NEURALGIA
  5. LYRICA [Interacting]
     Indication: NERVE INJURY
  6. LYRICA [Interacting]
     Indication: SURGERY
  7. ARICEPT [Concomitant]
     Indication: AMNESIA
     Dosage: 10 MG, UNK
     Dates: start: 2013
  8. LEVOTHYROXINE [Concomitant]
     Indication: THYROID DISORDER
     Dosage: 25 MG, UNK
  9. MORPHINE SULFATE [Concomitant]
     Indication: PAIN
     Dosage: 15 MG, DAILY
  10. VITAMIN D [Concomitant]
     Dosage: 1000 MG, UNK

REACTIONS (3)
  - Drug interaction [Unknown]
  - Drug ineffective [Unknown]
  - Increased appetite [Unknown]
